FAERS Safety Report 14240954 (Version 6)
Quarter: 2020Q2

REPORT INFORMATION
  Report Type: Report from Study
  Country: US (occurrence: US)
  Receive Date: 20171130
  Receipt Date: 20200402
  Transmission Date: 20200713
  Serious: Yes (Hospitalization)
  Sender: FDA-Public Use
  Company Number: US-ACTELION-A-US2017-163445

PATIENT
  Sex: Female
  Weight: 71.2 kg

DRUGS (5)
  1. SILDENAFIL CITRATE. [Concomitant]
     Active Substance: SILDENAFIL CITRATE
  2. WARFARIN [Concomitant]
     Active Substance: WARFARIN
  3. OPSUMIT [Suspect]
     Active Substance: MACITENTAN
     Indication: PULMONARY ARTERIAL HYPERTENSION
     Dosage: 10 MG, QD
     Route: 048
     Dates: start: 20180126
  4. OXYGEN. [Concomitant]
     Active Substance: OXYGEN
     Dosage: 24H/DAY
  5. UPTRAVI [Suspect]
     Active Substance: SELEXIPAG
     Indication: PULMONARY ARTERIAL HYPERTENSION
     Dosage: 800 MG, BID
     Route: 048

REACTIONS (8)
  - Pulmonary arterial hypertension [Unknown]
  - Condition aggravated [Unknown]
  - Hospitalisation [Unknown]
  - Dysgraphia [Unknown]
  - Pneumonia [Unknown]
  - Weight increased [Unknown]
  - Therapeutic product ineffective [Unknown]
  - Renal disorder [Unknown]

NARRATIVE: CASE EVENT DATE: 2017
